FAERS Safety Report 9728836 (Version 2)
Quarter: 2014Q1

REPORT INFORMATION
  Report Type: Spontaneous
  Country: US (occurrence: US)
  Receive Date: 20131204
  Receipt Date: 20140103
  Transmission Date: 20141002
  Serious: Yes (Hospitalization)
  Sender: FDA-Public Use
  Company Number: US-BAXTER-2013BAX048035

PATIENT
  Sex: Female

DRUGS (2)
  1. DIANEAL LOW CALCIUM [Suspect]
     Indication: RENAL FAILURE CHRONIC
     Route: 033
     Dates: start: 20120707, end: 20131127
  2. DIANEAL LOW CALCIUM [Suspect]
     Route: 033
     Dates: start: 201312

REACTIONS (3)
  - Haematoma [Recovering/Resolving]
  - Urinary tract infection [Recovered/Resolved]
  - Fluid retention [Recovering/Resolving]
